FAERS Safety Report 7908462-X (Version None)
Quarter: 2011Q4

REPORT INFORMATION
  Report Type: 
  Country: None (occurrence: None)
  Receive Date: 20111111
  Receipt Date: 20111103
  Transmission Date: 20120403
  Serious: Yes (Hospitalization)
  Sender: FDA-Public Use
  Company Number: FR-JNJFOC-20111103542

PATIENT
  Age: 86 Year
  Sex: Male

DRUGS (1)
  1. RISPERDAL [Suspect]
     Indication: PERSECUTORY DELUSION
     Route: 048
     Dates: start: 20070301

REACTIONS (5)
  - DIPLOPIA [None]
  - CONFUSIONAL STATE [None]
  - GAIT DISTURBANCE [None]
  - STRABISMUS [None]
  - EYELID PTOSIS [None]
